FAERS Safety Report 9858972 (Version 1)
Quarter: 2014Q1

REPORT INFORMATION
  Report Type: Spontaneous
  Country: US (occurrence: US)
  Receive Date: 20140131
  Receipt Date: 20140131
  Transmission Date: 20141002
  Serious: Yes (Death)
  Sender: FDA-Public Use
  Company Number: CHPA2014US001723

PATIENT
  Age: 65 Year
  Sex: Female

DRUGS (4)
  1. TRIAMINIC (DEXTROMETHORPHAN) [Suspect]
     Route: 048
  2. VENLAFAXINE [Suspect]
     Route: 048
  3. TRAZODONE [Suspect]
     Route: 048
  4. FLUOXETINE [Suspect]
     Route: 048

REACTIONS (1)
  - Intentional drug misuse [Fatal]
